FAERS Safety Report 14678767 (Version 1)
Quarter: 2018Q1

REPORT INFORMATION
  Report Type: Spontaneous
  Country: US (occurrence: US)
  Receive Date: 20180326
  Receipt Date: 20180326
  Transmission Date: 20180509
  Serious: Yes (Death)
  Sender: FDA-Public Use
  Company Number: US-CLINIGEN GROUP PLC/ CLINIGEN HEALTHCARE LTD-US-CLGN-18-00122

PATIENT
  Age: 38 Year
  Sex: Male

DRUGS (8)
  1. LEVETIRACETAM. [Concomitant]
     Active Substance: LEVETIRACETAM
     Indication: SEIZURE
  2. TACROLIMUS. [Concomitant]
     Active Substance: TACROLIMUS
     Indication: PROPHYLAXIS AGAINST GRAFT VERSUS HOST DISEASE
  3. CYCLOPHOSPHAMIDE. [Concomitant]
     Active Substance: CYCLOPHOSPHAMIDE
     Indication: BONE MARROW CONDITIONING REGIMEN
  4. METHOTREXATE. [Concomitant]
     Active Substance: METHOTREXATE
     Indication: PROPHYLAXIS AGAINST GRAFT VERSUS HOST DISEASE
  5. FOSCARNET SODIUM. [Suspect]
     Active Substance: FOSCARNET SODIUM
     Indication: HUMAN HERPESVIRUS 6 INFECTION
  6. ACYCLOVIR. [Concomitant]
     Active Substance: ACYCLOVIR
     Indication: ANTIVIRAL PROPHYLAXIS
  7. SIROLIMUS. [Concomitant]
     Active Substance: SIROLIMUS
     Indication: PROPHYLAXIS AGAINST GRAFT VERSUS HOST DISEASE
  8. MYCOPHENOLATE [Concomitant]
     Active Substance: MYCOPHENOLIC ACID
     Indication: GRAFT VERSUS HOST DISEASE

REACTIONS (4)
  - Venoocclusive liver disease [Fatal]
  - Renal failure [Fatal]
  - Graft versus host disease in liver [Fatal]
  - Off label use [Unknown]
